FAERS Safety Report 8166771-6 (Version None)
Quarter: 2012Q1

REPORT INFORMATION
  Report Type: 
  Country: None (occurrence: None)
  Receive Date: 20120221
  Receipt Date: 20120210
  Transmission Date: 20120608
  Serious: Yes (Other)
  Sender: FDA-Public Use
  Company Number: USA/USA/12/0023011

PATIENT
  Age: 63 Year
  Sex: Female
  Weight: 139.2543 kg

DRUGS (3)
  1. ZOLOFT [Suspect]
  2. METOPROLOL SUCCINATE [Suspect]
  3. AMLODIPINE BESYLATE AND BENAZEPRIL HCL [Suspect]
     Indication: HYPERTENSION
     Dosage: 1 DOSAGE FORMS, 1 IN 1 D, ORAL
     Route: 048
     Dates: start: 20111207, end: 20111212

REACTIONS (7)
  - PRODUCT SUBSTITUTION ISSUE [None]
  - EPISTAXIS [None]
  - HAEMORRHAGE URINARY TRACT [None]
  - DRUG INEFFECTIVE [None]
  - PRODUCT QUALITY ISSUE [None]
  - BLOOD PRESSURE INCREASED [None]
  - FEELING ABNORMAL [None]
